FAERS Safety Report 8444784-4 (Version None)
Quarter: 2012Q2

REPORT INFORMATION
  Report Type: 
  Country: None (occurrence: None)
  Receive Date: 20120323
  Receipt Date: 20110817
  Transmission Date: 20120825
  Serious: Yes (Hospitalization)
  Sender: FDA-Public Use
  Company Number: 163-21880-11082164

PATIENT
  Age: 70 Year
  Sex: Female
  Weight: 58.9676 kg

DRUGS (13)
  1. FLAXSEED (LINSEED OIL) (CAPSULES) [Concomitant]
  2. LORTAB (VICODIN)(UNKNOWN) [Concomitant]
  3. REVLIMID [Suspect]
     Indication: MULTIPLE MYELOMA
     Dosage: 5 MG, 1 IN 1 D, PO, 25 MG, 1 IN 1 D, PO, 5 MG, DAILY, PO
     Route: 048
     Dates: start: 20100401
  4. REVLIMID [Suspect]
     Indication: MULTIPLE MYELOMA
     Dosage: 5 MG, 1 IN 1 D, PO, 25 MG, 1 IN 1 D, PO, 5 MG, DAILY, PO
     Route: 048
     Dates: start: 20090401
  5. REVLIMID [Suspect]
     Indication: MULTIPLE MYELOMA
     Dosage: 5 MG, 1 IN 1 D, PO, 25 MG, 1 IN 1 D, PO, 5 MG, DAILY, PO
     Route: 048
     Dates: start: 20090328
  6. MUCINEX (GUAI FENESIN) (UNKNOWN) [Concomitant]
  7. ACYCLOVIR (ACICLOVIR) (UNKNOWN) [Concomitant]
  8. ASPIRIN [Concomitant]
  9. BENADRYL (DIPHENHYDRAMINE) (UNKNOWN) [Concomitant]
  10. ALBUTEROL (SALBUTAMOL ) (UNKNOWN) [Concomitant]
  11. CELEBREX [Concomitant]
  12. MULTIVITAMINS (MULTIVITAMINS) (UNKNOWN) [Concomitant]
  13. DEXAMETHASONE [Concomitant]

REACTIONS (2)
  - WHITE BLOOD CELL COUNT DECREASED [None]
  - PNEUMONIA [None]
